FAERS Safety Report 23433708 (Version 1)
Quarter: 2024Q1

REPORT INFORMATION
  Report Type: Spontaneous
  Country: CN (occurrence: CN)
  Receive Date: 20240123
  Receipt Date: 20240123
  Transmission Date: 20240410
  Serious: Yes (Hospitalization)
  Sender: FDA-Public Use
  Company Number: CN-ELI_LILLY_AND_COMPANY-CN202401007910

PATIENT
  Age: 81 Year
  Sex: Female
  Weight: 36 kg

DRUGS (1)
  1. BARICITINIB [Suspect]
     Active Substance: BARICITINIB
     Indication: Lung neoplasm malignant
     Dosage: 100 MG, BID
     Route: 048
     Dates: start: 20231214, end: 20231231

REACTIONS (5)
  - Pruritus [Recovering/Resolving]
  - Swelling [Recovering/Resolving]
  - Rash [Recovering/Resolving]
  - Off label use [Unknown]
  - Overdose [Unknown]
